FAERS Safety Report 21521930 (Version 1)
Quarter: 2022Q4

REPORT INFORMATION
  Report Type: Report from Study
  Country: AU (occurrence: AU)
  Receive Date: 20221028
  Receipt Date: 20221028
  Transmission Date: 20230112
  Serious: Yes (Hospitalization)
  Sender: FDA-Public Use
  Company Number: AU-ABBVIE-4178374

PATIENT
  Age: 67 Year
  Sex: Female

DRUGS (3)
  1. CARBIDOPA\LEVODOPA [Suspect]
     Active Substance: CARBIDOPA\LEVODOPA
     Indication: Parkinson^s disease
     Dosage: DURATION TEXT: 24 HOURS, DUODOPA 100ML GEL CASSETTE
     Route: 050
     Dates: start: 20221021, end: 202210
  2. CARBIDOPA\LEVODOPA [Suspect]
     Active Substance: CARBIDOPA\LEVODOPA
  3. LEVODOPA [Concomitant]
     Active Substance: LEVODOPA
     Indication: Product used for unknown indication
     Route: 048

REACTIONS (5)
  - Fall [Recovered/Resolved with Sequelae]
  - Device dislocation [Recovered/Resolved]
  - Therapeutic product effect incomplete [Unknown]
  - Muscle rigidity [Unknown]
  - Device dislocation [Unknown]

NARRATIVE: CASE EVENT DATE: 20221001
